FAERS Safety Report 5532355-9 (Version None)
Quarter: 2007Q4

REPORT INFORMATION
  Report Type: 
  Country: None (occurrence: None)
  Receive Date: 20071203
  Receipt Date: 20071126
  Transmission Date: 20080405
  Serious: Yes (Other)
  Sender: FDA-Public Use
  Company Number: CAWYE210123AUG07

PATIENT
  Age: 64 Year
  Sex: Female
  Weight: 100 kg

DRUGS (4)
  1. INDERAL LA [Suspect]
     Indication: HYPERTENSION
     Route: 048
     Dates: start: 19820101, end: 20070101
  2. DIABETA [Concomitant]
     Indication: DIABETES MELLITUS
     Route: 048
     Dates: start: 19920101
  3. AVANDIA [Concomitant]
     Route: 048
  4. ACETYLSALICYLIC ACID SRT [Concomitant]
     Route: 048
     Dates: start: 20050101

REACTIONS (1)
  - PEMPHIGOID [None]
